FAERS Safety Report 7163567-9 (Version None)
Quarter: 2010Q4

REPORT INFORMATION
  Report Type: 
  Country: None (occurrence: None)
  Receive Date: 20101215
  Receipt Date: 20100507
  Transmission Date: 20110411
  Serious: Yes (Life-Threatening)
  Sender: FDA-Public Use
  Company Number: FR-PFIZER INC-2010057610

PATIENT
  Age: 89 Year
  Sex: Female

DRUGS (14)
  1. LYRICA [Suspect]
     Indication: NEURALGIA
     Dosage: 75 MG, 2X/DAY
     Route: 048
     Dates: start: 20100423, end: 20100426
  2. FUCIDINE [Suspect]
     Indication: INFECTED SKIN ULCER
     Dosage: UNK
     Route: 048
     Dates: start: 20100413, end: 20100429
  3. XYZAL [Suspect]
     Dosage: 5 MG, 1X/DAY
     Route: 048
     Dates: start: 20100424, end: 20100426
  4. ALDACTONE [Concomitant]
  5. IMOVANE [Concomitant]
  6. GAVISCON [Concomitant]
  7. TRIATEC [Concomitant]
     Dosage: 2.5 MG, UNK
  8. LASIX [Concomitant]
     Dosage: 20 MG, UNK
  9. DIGOXIN [Concomitant]
  10. CARDENSIEL [Concomitant]
     Dosage: 2.5 MG, UNK
  11. NEXIUM [Concomitant]
     Dosage: 40 MG, UNK
  12. PREVISCAN [Concomitant]
     Dosage: UNK
     Dates: end: 20100427
  13. OXYCODONE HCL [Concomitant]
  14. OXYCONTIN [Concomitant]

REACTIONS (3)
  - AGRANULOCYTOSIS [None]
  - NEUTROPENIA [None]
  - THROMBOCYTOPENIA [None]
